FAERS Safety Report 14046730 (Version 2)
Quarter: 2017Q4

REPORT INFORMATION
  Report Type: Report from Study
  Country: GB (occurrence: GB)
  Receive Date: 20171005
  Receipt Date: 20171009
  Transmission Date: 20180321
  Serious: Yes (Death)
  Sender: FDA-Public Use
  Company Number: GB-JNJFOC-20171001798

PATIENT
  Sex: Male
  Weight: 65 kg

DRUGS (9)
  1. CICLOSPORIN [Concomitant]
     Active Substance: CYCLOSPORINE
     Route: 065
     Dates: start: 20100318
  2. MEBEVERINE [Concomitant]
     Active Substance: MEBEVERINE
     Route: 065
     Dates: start: 20111101
  3. FUMARIC ACID [Concomitant]
     Active Substance: FUMARIC ACID
     Route: 065
     Dates: start: 20110526
  4. CISPLATIN. [Concomitant]
     Active Substance: CISPLATIN
     Route: 065
     Dates: start: 20150601, end: 20150604
  5. ASPIRIN. [Concomitant]
     Active Substance: ASPIRIN
     Route: 065
     Dates: start: 20080918
  6. CISPLATIN. [Concomitant]
     Active Substance: CISPLATIN
     Route: 065
     Dates: start: 20150622, end: 20150626
  7. STELARA [Suspect]
     Active Substance: USTEKINUMAB
     Indication: PSORIASIS
     Route: 058
     Dates: start: 20121101
  8. SIMVASTATIN. [Concomitant]
     Active Substance: SIMVASTATIN
     Route: 065
     Dates: start: 20010924
  9. ADALAT [Concomitant]
     Active Substance: NIFEDIPINE
     Route: 065
     Dates: start: 20030313

REACTIONS (1)
  - Lung squamous cell carcinoma metastatic [Fatal]
